FAERS Safety Report 4624637-X (Version None)
Quarter: 2005Q1

REPORT INFORMATION
  Report Type: 
  Country: None (occurrence: None)
  Receive Date: 20050107
  Receipt Date: 20040914
  Transmission Date: 20050727
  Serious: No
  Sender: FDA-Public Use
  Company Number: 234642K04USA

PATIENT
  Age: 56 Year
  Sex: Female

DRUGS (2)
  1. REBIF [Suspect]
     Indication: MULTIPLE SCLEROSIS
     Dosage: 22 MCG
     Dates: start: 20040810
  2. TRAZODONE HCL [Concomitant]

REACTIONS (3)
  - DYSARTHRIA [None]
  - INAPPROPRIATE AFFECT [None]
  - INSOMNIA [None]
